FAERS Safety Report 19896343 (Version 1)
Quarter: 2021Q3

REPORT INFORMATION
  Report Type: Spontaneous
  Country: DE (occurrence: DE)
  Receive Date: 20210929
  Receipt Date: 20210929
  Transmission Date: 20211014
  Serious: Yes (Hospitalization, Other)
  Sender: FDA-Public Use
  Company Number: DE-PFIZER INC-202101222562

PATIENT

DRUGS (1)
  1. CYTOTEC [Suspect]
     Active Substance: MISOPROSTOL
     Indication: LABOUR INDUCTION
     Dosage: WITHIN 71 HOURS 1X 25 PLUS 5X 50
     Route: 064
     Dates: start: 20130315, end: 20130318

REACTIONS (3)
  - Foetal exposure during delivery [Unknown]
  - Neonatal hypoxia [Unknown]
  - Developmental delay [Unknown]

NARRATIVE: CASE EVENT DATE: 201303
